FAERS Safety Report 10908577 (Version 1)
Quarter: 2015Q1

REPORT INFORMATION
  Report Type: Report from Study
  Country: US (occurrence: US)
  Receive Date: 20150312
  Receipt Date: 20150312
  Transmission Date: 20150721
  Serious: Yes (Hospitalization, Other)
  Sender: FDA-Public Use
  Company Number: US-JNJFOC-20150304844

PATIENT
  Age: 55 Year
  Sex: Female
  Weight: 61.24 kg

DRUGS (4)
  1. REMICADE [Suspect]
     Active Substance: INFLIXIMAB
     Indication: RHEUMATOID ARTHRITIS
     Route: 042
     Dates: start: 201407, end: 201503
  2. METHOTREXATE [Suspect]
     Active Substance: METHOTREXATE
     Indication: RHEUMATOID ARTHRITIS
     Route: 058
     Dates: start: 2010
  3. CRESTOR [Concomitant]
     Active Substance: ROSUVASTATIN CALCIUM
     Indication: CARDIAC DISORDER
     Route: 065
     Dates: start: 2010
  4. ZETIA [Concomitant]
     Active Substance: EZETIMIBE
     Indication: CARDIAC DISORDER
     Route: 048
     Dates: start: 2010

REACTIONS (12)
  - Haematemesis [Unknown]
  - Adverse drug reaction [Unknown]
  - Renal failure [Recovered/Resolved]
  - Pruritus [Recovering/Resolving]
  - Asthenia [Unknown]
  - Pulmonary oedema [Unknown]
  - Chromaturia [Recovered/Resolved]
  - Diverticulitis [Unknown]
  - Eating disorder [Unknown]
  - Pericardial effusion [Unknown]
  - Weight decreased [Unknown]
  - Bone disorder [Unknown]

NARRATIVE: CASE EVENT DATE: 201407
